FAERS Safety Report 4267049-3 (Version None)
Quarter: 2004Q1

REPORT INFORMATION
  Report Type: 
  Country: None (occurrence: None)
  Receive Date: 20040108
  Receipt Date: 20030820
  Transmission Date: 20041129
  Serious: Yes (Other)
  Sender: FDA-Public Use
  Company Number: JP-BRISTOL-MYERS SQUIBB COMPANY-12362968

PATIENT
  Age: 69 Year
  Sex: Male

DRUGS (12)
  1. PARAPLATIN [Suspect]
     Indication: HODGKIN'S DISEASE
     Route: 042
  2. ENDOXAN [Suspect]
     Indication: HODGKIN'S DISEASE
  3. IFOMIDE [Suspect]
     Indication: HODGKIN'S DISEASE
  4. BLEOMYCIN [Suspect]
     Indication: HODGKIN'S DISEASE
  5. ETOPOSIDE [Suspect]
     Indication: HODGKIN'S DISEASE
  6. DACARBAZINE [Suspect]
     Indication: HODGKIN'S DISEASE
  7. ADRIAMYCIN PFS [Suspect]
     Indication: HODGKIN'S DISEASE
  8. ONCOVIN [Suspect]
     Indication: HODGKIN'S DISEASE
  9. NATULAN [Suspect]
     Indication: HODGKIN'S DISEASE
  10. DEXAMETHASONE [Concomitant]
  11. PREDNISOLONE [Concomitant]
     Route: 048
  12. RADIATION THERAPY [Concomitant]

REACTIONS (2)
  - ACUTE PROMYELOCYTIC LEUKAEMIA [None]
  - PANCYTOPENIA [None]
